FAERS Safety Report 11225827 (Version 2)
Quarter: 2015Q3

REPORT INFORMATION
  Report Type: Spontaneous
  Country: IT (occurrence: IT)
  Receive Date: 20150629
  Receipt Date: 20150820
  Transmission Date: 20151125
  Serious: Yes (Other)
  Sender: FDA-Public Use
  Company Number: IT-GLAXOSMITHKLINE-IT2015GSK091996

PATIENT
  Age: 68 Year
  Sex: Female

DRUGS (4)
  1. OKI [Concomitant]
     Active Substance: KETOPROFEN LYSINE
     Indication: PRODUCT USED FOR UNKNOWN INDICATION
  2. ARNICA (HOMEOPATHIC MEDICATION) [Concomitant]
     Indication: PRODUCT USED FOR UNKNOWN INDICATION
  3. TALAVIR [Suspect]
     Active Substance: VALACYCLOVIR HYDROCHLORIDE
     Indication: OPHTHALMIC HERPES SIMPLEX
     Dosage: 1000 MG, QD
     Route: 048
     Dates: start: 20150612, end: 20150616
  4. ROBILAS [Concomitant]
     Indication: PRODUCT USED FOR UNKNOWN INDICATION

REACTIONS (1)
  - Dermatitis bullous [Recovered/Resolved]

NARRATIVE: CASE EVENT DATE: 20150615
